APPROVED DRUG PRODUCT: DICUMAROL
Active Ingredient: DICUMAROL
Strength: 50MG
Dosage Form/Route: TABLET;ORAL
Application: N005545 | Product #004
Applicant: ABBVIE INC
Approved: Approved Prior to Jan 1, 1982 | RLD: No | RS: No | Type: DISCN